FAERS Safety Report 11948826 (Version 1)
Quarter: 2016Q1

REPORT INFORMATION
  Report Type: Report from Study
  Country: US (occurrence: US)
  Receive Date: 20160125
  Receipt Date: 20160125
  Transmission Date: 20160526
  Serious: Yes (Other)
  Sender: FDA-Public Use
  Company Number: US-GILEAD-2016-0194142

PATIENT
  Sex: Female

DRUGS (1)
  1. LEDIPASVIR/SOFOSBUVIR [Suspect]
     Active Substance: LEDIPASVIR\SOFOSBUVIR
     Indication: HEPATITIS C
     Dosage: UNK
     Route: 048

REACTIONS (6)
  - Tinnitus [Unknown]
  - Dizziness [Unknown]
  - Headache [Unknown]
  - Dyspepsia [Unknown]
  - Pulmonary fibrosis [Unknown]
  - Neuropathy peripheral [Unknown]
